FAERS Safety Report 4502336-2 (Version None)
Quarter: 2004Q4

REPORT INFORMATION
  Report Type: 
  Country: None (occurrence: None)
  Receive Date: 20041110
  Receipt Date: 20040111
  Transmission Date: 20050328
  Serious: Yes (Hospitalization)
  Sender: FDA-Public Use
  Company Number: 200410435BYL

PATIENT
  Age: 61 Year
  Sex: Female
  Weight: 75 kg

DRUGS (8)
  1. ASPIRIN [Suspect]
     Indication: CEREBRAL INFARCTION
     Dosage: 100 MG, QD, ORAL
     Route: 048
     Dates: start: 20040803, end: 20040809
  2. TANATRIL   (IMIDAPRIL HYDROCHLORIDE) [Suspect]
     Indication: HYPERTENSION
     Dosage: 5 MG, QD, ORAL
     Route: 048
     Dates: start: 20040727, end: 20040809
  3. DEPAKENE [Suspect]
     Indication: EPILEPSY
     Dosage: 400 MG, BID, ORAL
     Route: 048
     Dates: start: 20040701, end: 20040809
  4. MAXIPIME [Suspect]
     Indication: PNEUMONIA
     Dosage: 1 G, BID, INTRAVENOUS
     Route: 042
     Dates: start: 20040724, end: 20040729
  5. BLOPRESS [Concomitant]
  6. NORVASC [Concomitant]
  7. RADICUT [Concomitant]
  8. FLUMARIN [Concomitant]

REACTIONS (18)
  - ALANINE AMINOTRANSFERASE INCREASED [None]
  - ASPARTATE AMINOTRANSFERASE INCREASED [None]
  - BLOOD LACTATE DEHYDROGENASE INCREASED [None]
  - CEREBRAL ARTERY OCCLUSION [None]
  - CEREBRAL INFARCTION [None]
  - DEPRESSED LEVEL OF CONSCIOUSNESS [None]
  - HEMIPLEGIA [None]
  - HYPERSENSITIVITY [None]
  - INFECTION [None]
  - LYMPHOCYTE STIMULATION TEST POSITIVE [None]
  - OCULAR HYPERAEMIA [None]
  - OEDEMA MUCOSAL [None]
  - PYREXIA [None]
  - RASH [None]
  - STEVENS-JOHNSON SYNDROME [None]
  - STOMATITIS [None]
  - SWOLLEN TONGUE [None]
  - TONGUE DISORDER [None]
